FAERS Safety Report 23977999 (Version 1)
Quarter: 2024Q2

REPORT INFORMATION
  Report Type: Spontaneous
  Country: DE (occurrence: None)
  Receive Date: 20240614
  Receipt Date: 20240614
  Transmission Date: 20240716
  Serious: Yes (Hospitalization)
  Sender: FDA-Public Use
  Company Number: 2024A133132

PATIENT
  Age: 74 Year
  Sex: Male
  Weight: 98 kg

DRUGS (1)
  1. DAPAGLIFLOZIN [Suspect]
     Active Substance: DAPAGLIFLOZIN
     Dosage: 1X T?GL.
     Route: 048
     Dates: start: 20240518, end: 20240522

REACTIONS (4)
  - Urinary tract infection [Recovered/Resolved with Sequelae]
  - Blood urine present [Recovered/Resolved with Sequelae]
  - Adverse event [Recovered/Resolved with Sequelae]
  - Pain [Not Recovered/Not Resolved]

NARRATIVE: CASE EVENT DATE: 20240518
